FAERS Safety Report 5000886-6 (Version None)
Quarter: 2006Q2

REPORT INFORMATION
  Report Type: 
  Country: None (occurrence: None)
  Receive Date: 20060512
  Receipt Date: 20050816
  Transmission Date: 20061013
  Serious: No
  Sender: FDA-Public Use
  Company Number: A0570509A

PATIENT
  Sex: Female

DRUGS (3)
  1. RELAFEN [Suspect]
     Indication: DRUG USE FOR UNKNOWN INDICATION
     Route: 065
  2. BEXTRA [Suspect]
     Indication: DRUG USE FOR UNKNOWN INDICATION
     Route: 065
  3. MOBIC [Suspect]
     Indication: DRUG USE FOR UNKNOWN INDICATION
     Route: 065

REACTIONS (2)
  - GASTRIC DISORDER [None]
  - URTICARIA [None]
